FAERS Safety Report 5952631-5 (Version None)
Quarter: 2008Q4

REPORT INFORMATION
  Report Type: 
  Country: None (occurrence: None)
  Receive Date: 20081028
  Receipt Date: 20080609
  Transmission Date: 20090506
  Serious: Yes (Other)
  Sender: FDA-Public Use
  Company Number: 172612USA

PATIENT
  Age: 24 Year
  Sex: Male

DRUGS (3)
  1. CLONAZEPAM [Suspect]
     Indication: CONVULSION
     Dosage: 2 MG (1 MG,2 IN 1 D), ORAL
     Route: 048
     Dates: start: 20080309
  2. OXCARBAZEPINE [Suspect]
     Dosage: (300 MG),ORAL
     Route: 048
  3. LAMOTRIGINE [Suspect]
     Dosage: (175 MG),ORAL
     Route: 048

REACTIONS (6)
  - AURA [None]
  - CONVULSION [None]
  - DRUG EFFECT DECREASED [None]
  - DYSKINESIA [None]
  - FLASHBACK [None]
  - PSYCHOTIC DISORDER [None]
